FAERS Safety Report 6806660-X (Version None)
Quarter: 2010Q2

REPORT INFORMATION
  Report Type: 
  Country: None (occurrence: None)
  Receive Date: 20100629
  Receipt Date: 20080418
  Transmission Date: 20101027
  Serious: No
  Sender: FDA-Public Use
  Company Number: US-PFIZER INC-2008034109

PATIENT
  Sex: Female

DRUGS (2)
  1. ARTHROTEC [Suspect]
     Indication: ARTHRITIS
     Route: 048
     Dates: start: 20080101, end: 20080101
  2. SULFONAMIDES, UREA DERIVATIVES [Concomitant]

REACTIONS (1)
  - HEPATIC ENZYME INCREASED [None]
